FAERS Safety Report 4723396-X (Version None)
Quarter: 2005Q3

REPORT INFORMATION
  Report Type: 
  Country: None (occurrence: None)
  Receive Date: 20050725
  Receipt Date: 20050622
  Transmission Date: 20060218
  Serious: Yes (Disabling)
  Sender: FDA-Public Use
  Company Number: CH-BRISTOL-MYERS SQUIBB COMPANY-13014592

PATIENT
  Age: 64 Year
  Sex: Female

DRUGS (5)
  1. VINFLUNINE [Suspect]
     Indication: BREAST CANCER METASTATIC
     Route: 042
     Dates: start: 20040927, end: 20040927
  2. DOXORUBICIN HCL [Suspect]
     Indication: BREAST CANCER METASTATIC
     Route: 042
     Dates: start: 20040927, end: 20040927
  3. ATACAND [Concomitant]
     Dates: start: 20030312
  4. BRUFEN [Concomitant]
     Dates: start: 20030618
  5. TORSEMIDE [Concomitant]
     Dates: start: 20041111

REACTIONS (1)
  - CARDIOMYOPATHY [None]
